FAERS Safety Report 8960573 (Version 1)
Quarter: 2012Q4

REPORT INFORMATION
  Report Type: Spontaneous
  Country: US (occurrence: None)
  Receive Date: 20121203
  Receipt Date: 20121203
  Transmission Date: 20130627
  Serious: Yes (Other)
  Sender: FDA-Public Use
  Company Number: DKLU1086656

PATIENT
  Age: 7 Year
  Sex: Male

DRUGS (1)
  1. SABRIL [Suspect]
     Dosage: 2 in 1 D,
     Route: 048
     Dates: start: 20100506

REACTIONS (1)
  - Respiratory disorder [None]
